FAERS Safety Report 20158180 (Version 1)
Quarter: 2021Q4

REPORT INFORMATION
  Report Type: Spontaneous
  Country: US (occurrence: US)
  Receive Date: 20211207
  Receipt Date: 20211207
  Transmission Date: 20220303
  Serious: No
  Sender: FDA-Public Use
  Company Number: US-SA-SAC20211202000175

PATIENT
  Age: 72 Year
  Sex: Female

DRUGS (10)
  1. KEVZARA [Suspect]
     Active Substance: SARILUMAB
     Indication: Rheumatoid arthritis
     Route: 058
     Dates: start: 20210630
  2. BUDESONIDE [Concomitant]
     Active Substance: BUDESONIDE
  3. VITAMIN B12 [Concomitant]
     Active Substance: CYANOCOBALAMIN
  4. BUTALBITAL [Concomitant]
     Active Substance: BUTALBITAL
     Dosage: 200MG
  5. TOPAMAX [Concomitant]
     Active Substance: TOPIRAMATE
     Dosage: 5MG
  6. OXYCODONE [Concomitant]
     Active Substance: OXYCODONE
     Dosage: 5MG
  7. PREDNISONE [Concomitant]
     Active Substance: PREDNISONE
     Dosage: 400MG
  8. ATENOLOL [Concomitant]
     Active Substance: ATENOLOL
     Dosage: 50MG
  9. CIPROFLOXACIN HYDROCHLORIDE [Concomitant]
     Active Substance: CIPROFLOXACIN HYDROCHLORIDE
     Dosage: 20MG
  10. LEFLUNOMIDE [Concomitant]
     Active Substance: LEFLUNOMIDE
     Dosage: 20MG

REACTIONS (2)
  - Headache [Unknown]
  - Lip blister [Unknown]

NARRATIVE: CASE EVENT DATE: 20210101
